FAERS Safety Report 18619631 (Version 1)
Quarter: 2020Q4

REPORT INFORMATION
  Report Type: Spontaneous
  Country: US (occurrence: US)
  Receive Date: 20201215
  Receipt Date: 20201215
  Transmission Date: 20210114
  Serious: Yes (Hospitalization)
  Sender: FDA-Public Use
  Company Number: US-FARMAPROD-202012-1640

PATIENT
  Sex: Female

DRUGS (11)
  1. OFLOXACIN. [Concomitant]
     Active Substance: OFLOXACIN
  2. LATANOPROST. [Concomitant]
     Active Substance: LATANOPROST
  3. LYRICA [Concomitant]
     Active Substance: PREGABALIN
  4. COMBIGAN [Concomitant]
     Active Substance: BRIMONIDINE TARTRATE\TIMOLOL MALEATE
     Dosage: 0.2%-0.5%
  5. ACICLOVIR [Concomitant]
     Active Substance: ACYCLOVIR
  6. LOMOTIL [Concomitant]
     Active Substance: ATROPINE SULFATE\DIPHENOXYLATE HYDROCHLORIDE
     Dosage: 2.5-0.25 MG
  7. OXERVATE [Suspect]
     Active Substance: CENEGERMIN-BKBJ
     Indication: NEUROTROPHIC KERATOPATHY
     Route: 047
     Dates: start: 20200911, end: 20201106
  8. AZOPT [Concomitant]
     Active Substance: BRINZOLAMIDE
     Dosage: DROPS SUSPENSION
  9. OXERVATE [Suspect]
     Active Substance: CENEGERMIN-BKBJ
     Route: 047
     Dates: start: 20201116
  10. PROZAC [Concomitant]
     Active Substance: FLUOXETINE HYDROCHLORIDE
  11. PREDNISOLONE/NEPAFENAC [Concomitant]

REACTIONS (3)
  - Haemoglobin decreased [Unknown]
  - Blood iron decreased [Unknown]
  - Blood potassium decreased [Unknown]
